FAERS Safety Report 12173426 (Version 2)
Quarter: 2016Q2

REPORT INFORMATION
  Report Type: Spontaneous
  Country: US (occurrence: US)
  Receive Date: 20160311
  Receipt Date: 20160505
  Transmission Date: 20160815
  Serious: Yes (Hospitalization)
  Sender: FDA-Public Use
  Company Number: US-ALLERGAN-1638318US

PATIENT
  Age: 2 Year
  Sex: Male

DRUGS (1)
  1. POLYMYXIN;TRIMETHOPRIM UNK [Suspect]
     Active Substance: POLYMYXIN B SULFATE\TRIMETHOPRIM SULFATE
     Indication: CONJUNCTIVITIS BACTERIAL
     Dosage: UNK UNK, SINGLE
     Route: 047

REACTIONS (1)
  - Anaphylactic reaction [Recovered/Resolved]
